FAERS Safety Report 9063375 (Version 1)
Quarter: 2013Q1

REPORT INFORMATION
  Report Type: Report from Study
  Country: US (occurrence: US)
  Receive Date: 20130129
  Receipt Date: 20130129
  Transmission Date: 20140127
  Serious: No
  Sender: FDA-Public Use
  Company Number: US-ABBOTT-12P-163-0945965-00

PATIENT
  Age: 40 Year
  Sex: Female

DRUGS (5)
  1. HUMIRA 40 MG/0.8 ML PEN [Suspect]
     Indication: CROHN^S DISEASE
     Dates: start: 201202
  2. PREDNISONE [Concomitant]
     Indication: CROHN^S DISEASE
  3. RANTIDINE [Concomitant]
     Indication: GASTROOESOPHAGEAL REFLUX DISEASE
  4. IMURAN [Concomitant]
     Indication: CROHN^S DISEASE
  5. ACETAMINOPHEN [Concomitant]
     Indication: ANALGESIC THERAPY

REACTIONS (3)
  - Injection site bruising [Recovering/Resolving]
  - Injection site haemorrhage [Recovering/Resolving]
  - Injection site haemorrhage [Recovering/Resolving]
